FAERS Safety Report 9262143 (Version 1)
Quarter: 2013Q2

REPORT INFORMATION
  Report Type: Spontaneous
  Country: US (occurrence: US)
  Receive Date: 20130430
  Receipt Date: 20130430
  Transmission Date: 20140414
  Serious: Yes (Other)
  Sender: FDA-Public Use
  Company Number: US-009507513-1304USA015039

PATIENT
  Age: 77 Year
  Sex: Male

DRUGS (3)
  1. PRINIVIL [Suspect]
     Dosage: 20 MG, QD, FOR 2 YEARS
  2. FLUOROURACIL [Interacting]
     Indication: ACTINIC KERATOSIS
     Route: 061
  3. METFORMIN [Concomitant]
     Dosage: 1500MG,QD,FOR 2 YEARS

REACTIONS (2)
  - Drug interaction [Unknown]
  - Angioedema [Recovered/Resolved]
